FAERS Safety Report 24355856 (Version 2)
Quarter: 2024Q3

REPORT INFORMATION
  Report Type: Report from Study
  Country: US (occurrence: US)
  Receive Date: 20240924
  Receipt Date: 20240927
  Transmission Date: 20241016
  Serious: Yes (Hospitalization)
  Sender: ABBVIE
  Company Number: US-ABBVIE-5931361

PATIENT
  Age: 52 Year
  Sex: Male

DRUGS (2)
  1. CREON [Suspect]
     Active Substance: PANCRELIPASE AMYLASE\PANCRELIPASE LIPASE\PANCRELIPASE PROTEASE
     Indication: Crohn^s disease
     Dosage: 36000 TAKE 3 CAPSULES BY MOUTH WITH MEALS 3 MEALS?PER DAY AND TAKE TWO CAPSULES BY MOUTH WITH SNA...
     Route: 048
     Dates: start: 2015
  2. ENTYVIO [Suspect]
     Active Substance: VEDOLIZUMAB
     Indication: Product used for unknown indication
     Dosage: INFUSION
     Route: 065

REACTIONS (12)
  - Colectomy [Recovering/Resolving]
  - Abnormal faeces [Unknown]
  - Wound complication [Not Recovered/Not Resolved]
  - Drug hypersensitivity [Recovering/Resolving]
  - Pneumonia [Recovering/Resolving]
  - Crohn^s disease [Recovering/Resolving]
  - Cerebral disorder [Unknown]
  - Colitis [Unknown]
  - Malaise [Not Recovered/Not Resolved]
  - Abdominal pain upper [Not Recovered/Not Resolved]
  - Pancreatitis [Unknown]
  - Unevaluable event [Unknown]

NARRATIVE: CASE EVENT DATE: 20160101
